FAERS Safety Report 7465885-3 (Version None)
Quarter: 2011Q2

REPORT INFORMATION
  Report Type: 
  Country: None (occurrence: None)
  Receive Date: 20110509
  Receipt Date: 20100412
  Transmission Date: 20111010
  Serious: No
  Sender: FDA-Public Use
  Company Number: US-ALEXION-A201000419

PATIENT
  Sex: Male

DRUGS (1)
  1. SOLIRIS [Suspect]
     Indication: PAROXYSMAL NOCTURNAL HAEMOGLOBINURIA
     Dosage: 600 MG,
     Route: 042
     Dates: start: 20100408

REACTIONS (3)
  - ERECTILE DYSFUNCTION [None]
  - MUSCLE SPASMS [None]
  - FATIGUE [None]
